FAERS Safety Report 5339773-2 (Version None)
Quarter: 2007Q2

REPORT INFORMATION
  Report Type: 
  Country: None (occurrence: None)
  Receive Date: 20070525
  Receipt Date: 20070515
  Transmission Date: 20071010
  Serious: Yes (Other)
  Sender: FDA-Public Use
  Company Number: 16547

PATIENT
  Sex: Male

DRUGS (4)
  1. DOXORUBICIN HCL [Suspect]
     Indication: LYMPHOMA
  2. VINCRISTINE [Concomitant]
     Indication: LYMPHOMA
  3. CYCLOPHOSPHAMIDE [Suspect]
     Indication: LYMPHOMA
  4. PREDNISONE TAB [Suspect]
     Indication: LYMPHOMA

REACTIONS (2)
  - LYMPHOMA [None]
  - MYELODYSPLASTIC SYNDROME [None]
